FAERS Safety Report 19937287 (Version 1)
Quarter: 2021Q4

REPORT INFORMATION
  Report Type: Spontaneous
  Country: FR (occurrence: FR)
  Receive Date: 20211010
  Receipt Date: 20211010
  Transmission Date: 20220304
  Serious: Yes (Disabling, Congenital Anomaly, Other)
  Sender: FDA-Public Use
  Company Number: FR-ABBVIE-21K-056-4107423-00

PATIENT
  Sex: Male

DRUGS (3)
  1. VALPROATE SODIUM [Suspect]
     Active Substance: VALPROATE SODIUM
     Indication: Product used for unknown indication
     Route: 064
     Dates: start: 19970828, end: 19980603
  2. ALBUTEROL SULFATE [Concomitant]
     Active Substance: ALBUTEROL SULFATE
     Indication: Product used for unknown indication
  3. FOLDINE [Concomitant]
     Indication: Product used for unknown indication

REACTIONS (23)
  - Foetal anticonvulsant syndrome [Unknown]
  - Foetal exposure during pregnancy [Unknown]
  - Breast malformation [Unknown]
  - Personality disorder [Unknown]
  - Dysmorphism [Unknown]
  - Hypospadias [Unknown]
  - Spine malformation [Unknown]
  - Enuresis [Unknown]
  - Speech disorder developmental [Unknown]
  - Communication disorder [Unknown]
  - Behaviour disorder [Unknown]
  - Psychomotor skills impaired [Unknown]
  - Disturbance in attention [Unknown]
  - Autism spectrum disorder [Unknown]
  - Visual impairment [Unknown]
  - Disturbance in social behaviour [Unknown]
  - Musculoskeletal disorder [Unknown]
  - Limb malformation [Unknown]
  - Gastrooesophageal reflux disease [Unknown]
  - Pharyngeal disorder [Unknown]
  - Nasal disorder [Unknown]
  - Ear disorder [Unknown]
  - Fatigue [Unknown]
